FAERS Safety Report 4303377-0 (Version None)
Quarter: 2004Q1

REPORT INFORMATION
  Report Type: 
  Country: None (occurrence: None)
  Receive Date: 20040223
  Receipt Date: 20040209
  Transmission Date: 20041129
  Serious: Yes (Hospitalization)
  Sender: FDA-Public Use
  Company Number: BRO-007167

PATIENT
  Age: 29 Year
  Sex: Female

DRUGS (2)
  1. IOPAMIRON 300 (BATCH # (S) [Suspect]
     Indication: COMPUTERISED TOMOGRAM
     Dosage: 90 ML, IV
     Route: 042
     Dates: start: 20040126, end: 20040126
  2. IOPAMIRON 300 (BATCH # (S) [Suspect]
     Indication: LIVER DISORDER
     Dosage: 90 ML, IV
     Route: 042
     Dates: start: 20040126, end: 20040126

REACTIONS (4)
  - ALANINE AMINOTRANSFERASE ABNORMAL [None]
  - ASPARTATE AMINOTRANSFERASE ABNORMAL [None]
  - LIVER DISORDER [None]
  - NAUSEA [None]
